FAERS Safety Report 5244245-X (Version None)
Quarter: 2007Q1

REPORT INFORMATION
  Report Type: 
  Country: None (occurrence: None)
  Receive Date: 20070222
  Receipt Date: 20070220
  Transmission Date: 20070707
  Serious: Yes (Death)
  Sender: FDA-Public Use
  Company Number: AT-JNJFOC-20070204990

PATIENT
  Age: 50 Year
  Sex: Male

DRUGS (6)
  1. RISPERDAL CONSTA [Suspect]
     Indication: SCHIZOPHRENIA
     Route: 030
  2. CLOZAPINE [Concomitant]
     Route: 048
  3. CLOZAPINE [Concomitant]
     Indication: SCHIZOPHRENIA
     Route: 048
  4. AKINETON [Concomitant]
     Indication: PARKINSONISM
     Route: 048
  5. TEMESTA [Concomitant]
     Indication: INSOMNIA
     Route: 048
  6. TEMESTA [Concomitant]
     Indication: ANXIETY
     Route: 048

REACTIONS (1)
  - GLOMERULONEPHRITIS [None]
